FAERS Safety Report 6995912-9 (Version None)
Quarter: 2010Q3

REPORT INFORMATION
  Report Type: 
  Country: None (occurrence: None)
  Receive Date: 20100918
  Receipt Date: 20081112
  Transmission Date: 20110219
  Serious: No
  Sender: FDA-Public Use
  Company Number: US-WYE-H06825608

PATIENT

DRUGS (4)
  1. EFFEXOR XR [Suspect]
     Indication: MAJOR DEPRESSION
     Dosage: UNKNOWN
     Dates: end: 20081020
  2. EFFEXOR XR [Suspect]
     Indication: GENERALISED ANXIETY DISORDER
  3. EFFEXOR XR [Suspect]
     Indication: SOCIAL PHOBIA
  4. EFFEXOR XR [Suspect]
     Indication: PANIC DISORDER

REACTIONS (1)
  - ANGER [None]
